FAERS Safety Report 21059265 (Version 5)
Quarter: 2022Q4

REPORT INFORMATION
  Report Type: Spontaneous
  Country: US (occurrence: US)
  Receive Date: 20220708
  Receipt Date: 20221219
  Transmission Date: 20230113
  Serious: Yes (Other)
  Sender: FDA-Public Use
  Company Number: US-PFIZER INC-PV202200016577

PATIENT
  Age: 91 Year
  Sex: Female
  Weight: 53.52 kg

DRUGS (2)
  1. BOSULIF [Suspect]
     Active Substance: BOSUTINIB MONOHYDRATE
     Indication: Iron deficiency anaemia
     Dosage: 300 MG, 1X/DAY (TAKE 3 AT ONE TIME)
  2. BOSULIF [Suspect]
     Active Substance: BOSUTINIB MONOHYDRATE
     Indication: Leukaemia
     Dosage: 100 MG

REACTIONS (5)
  - Blindness [Unknown]
  - Product dose omission issue [Unknown]
  - Renal disorder [Unknown]
  - Off label use [Unknown]
  - Malaise [Unknown]

NARRATIVE: CASE EVENT DATE: 20220705
